FAERS Safety Report 14630072 (Version 4)
Quarter: 2019Q3

REPORT INFORMATION
  Report Type: Spontaneous
  Country: US (occurrence: US)
  Receive Date: 20180313
  Receipt Date: 20190822
  Transmission Date: 20191004
  Serious: Yes (Other)
  Sender: FDA-Public Use
  Company Number: US-PFIZER INC-2018100229

PATIENT
  Age: 69 Year
  Sex: Female
  Weight: 63 kg

DRUGS (5)
  1. LASIX [Concomitant]
     Active Substance: FUROSEMIDE
     Indication: CELLULITIS
     Dosage: 2 DF, 1X/DAY
     Route: 048
  2. POTASSIUM [Concomitant]
     Active Substance: POTASSIUM
     Dosage: 1 DF, 1X/DAY
     Route: 048
  3. IBRANCE [Suspect]
     Active Substance: PALBOCICLIB
     Dosage: 125 MG, CYCLIC (125MG CAPSULE ONCE A DAY BY MOUTH FOR 21 DAYS AND THEN OFF FOR 7 DAYS)
     Route: 048
  4. COUMADIN [Concomitant]
     Active Substance: WARFARIN SODIUM
     Indication: THROMBOSIS
     Dosage: 5 MG, 1X/DAY
     Route: 048
  5. TAMOXIFEN [Concomitant]
     Active Substance: TAMOXIFEN
     Indication: NEOPLASM MALIGNANT
     Dosage: 1 DF, 1X/DAY
     Route: 048

REACTIONS (4)
  - Depression [Unknown]
  - Amnesia [Unknown]
  - Deafness unilateral [Unknown]
  - Therapeutic response unexpected [Not Recovered/Not Resolved]
